FAERS Safety Report 9278992 (Version 2)
Quarter: 2014Q2

REPORT INFORMATION
  Report Type: Spontaneous
  Country: US (occurrence: US)
  Receive Date: 20130508
  Receipt Date: 20140407
  Transmission Date: 20141212
  Serious: No
  Sender: FDA-Public Use
  Company Number: US-ASTRAZENECA-2013SE25286

PATIENT
  Age: 68 Year
  Sex: Male
  Weight: 111.1 kg

DRUGS (5)
  1. NEXIUM [Suspect]
     Indication: OESOPHAGITIS
     Route: 048
     Dates: start: 1992
  2. NEXIUM [Suspect]
     Indication: OESOPHAGITIS
     Route: 048
  3. OMEPRAZOLE [Suspect]
     Indication: OESOPHAGITIS
     Dosage: DAILY
     Route: 048
     Dates: start: 2010
  4. OMEPRAZOLE [Suspect]
     Indication: OESOPHAGITIS
     Route: 048
  5. PANTOPRAZOLE [Concomitant]

REACTIONS (6)
  - Gastrooesophageal reflux disease [Unknown]
  - Barrett^s oesophagus [Unknown]
  - Abdominal pain [Unknown]
  - Dyspepsia [Unknown]
  - Off label use [Unknown]
  - Drug ineffective [Unknown]
